FAERS Safety Report 5868752-1 (Version None)
Quarter: 2008Q3

REPORT INFORMATION
  Report Type: 
  Country: None (occurrence: None)
  Receive Date: 20080903
  Receipt Date: 20080826
  Transmission Date: 20090109
  Serious: Yes (Hospitalization, Other)
  Sender: FDA-Public Use
  Company Number: SE-ABBOTT-08P-150-0472691-00

PATIENT
  Age: 60 Year
  Sex: Male

DRUGS (21)
  1. ZEMPLAR [Suspect]
     Indication: HYPERPARATHYROIDISM
     Dosage: 5 MCG/ML, 1 ML ONCE A WEEK
     Route: 050
     Dates: start: 20080505
  2. OMEPRAZOLE SODIUM [Concomitant]
     Indication: DRUG USE FOR UNKNOWN INDICATION
     Route: 048
  3. TRIOBE [Concomitant]
     Indication: DRUG USE FOR UNKNOWN INDICATION
     Dosage: 1 TAB AFTER DIALYSIS, MON, WED, AND FRI
     Route: 048
  4. PARENTROVITE [Concomitant]
     Indication: DRUG USE FOR UNKNOWN INDICATION
     Dosage: 1 TAB AFTER DIALYSIS, MON, WED, AND FRI
     Route: 048
  5. PYRIDOXINE HYDROCHLORIDE [Concomitant]
     Indication: DRUG USE FOR UNKNOWN INDICATION
     Dosage: 1 TAB AFTER DIALYSIS, MON, WED, AND FRI
     Route: 048
  6. CALCIUM CARBONATE [Concomitant]
     Indication: DRUG USE FOR UNKNOWN INDICATION
     Dosage: TWO 250MG, WITH MEALS
     Route: 048
  7. WARFARIN SODIUM [Concomitant]
     Indication: DRUG USE FOR UNKNOWN INDICATION
     Dosage: ACCORDING TO ORDINATION
     Route: 048
  8. METOPROLOL TARTRATE [Concomitant]
     Indication: DRUG USE FOR UNKNOWN INDICATION
     Route: 048
  9. ENALAPRIL MALEATE [Concomitant]
     Indication: DRUG USE FOR UNKNOWN INDICATION
     Route: 048
  10. ZINKPOWDERFLUID ESSEX CREAM [Concomitant]
     Indication: DRUG USE FOR UNKNOWN INDICATION
     Dosage: ACCORDING TO ORDINATION (ON SKIN)
  11. PREDNISOLONE SODIUM PHOSPHATE [Concomitant]
     Indication: DRUG USE FOR UNKNOWN INDICATION
     Dosage: 2X1
     Route: 048
  12. GABAPENTIN [Concomitant]
     Indication: DRUG USE FOR UNKNOWN INDICATION
     Dosage: ONE TO NIGHT
     Route: 048
  13. PROPIOMAZINE MALEATE [Concomitant]
     Indication: DRUG USE FOR UNKNOWN INDICATION
     Route: 048
  14. DEXAMETHASONE TAB [Concomitant]
     Indication: DRUG USE FOR UNKNOWN INDICATION
     Dosage: 1X3 IN EYES
  15. CARBOMER [Concomitant]
     Indication: DRUG USE FOR UNKNOWN INDICATION
     Dosage: 1X3 EYE GEL, IN EYES
  16. RESONIUM POWDER [Concomitant]
     Indication: DRUG USE FOR UNKNOWN INDICATION
     Dosage: 3 TIMES/WK, NON DIALYSIS DAYS
     Route: 048
  17. SEVELAMER [Concomitant]
     Indication: DRUG USE FOR UNKNOWN INDICATION
     Dosage: 3X3 WITH MEALS
     Route: 048
  18. AMNIESS [Concomitant]
     Indication: DRUG USE FOR UNKNOWN INDICATION
     Dosage: 5 TAB AFTER DIALYSIS, MON, TUES, AND FRI
     Route: 048
  19. ENOXAPARIN SODIUM [Concomitant]
     Indication: DRUG USE FOR UNKNOWN INDICATION
     Dosage: 2500E IN THE ARTERYGATE AT  DIALYSISSTART+2500E AFTER 2 HRS
     Route: 050
  20. SACCHARATED IRON OXIDE [Concomitant]
     Indication: DRUG USE FOR UNKNOWN INDICATION
     Dosage: 20MG/ML, 5ML ONCE A MONTH WITH DIALYSIS
     Route: 050
  21. EPOETIN BETA [Concomitant]
     Indication: DRUG USE FOR UNKNOWN INDICATION
     Dosage: 100000E, MULTIDOSE 7000E ONCE A WK WITH DIALYSIS
     Route: 050

REACTIONS (5)
  - ANAEMIA [None]
  - C-REACTIVE PROTEIN INCREASED [None]
  - EPISCLERITIS [None]
  - VENA CAVA THROMBOSIS [None]
  - WEGENER'S GRANULOMATOSIS [None]
